FAERS Safety Report 5358234-8 (Version None)
Quarter: 2007Q2

REPORT INFORMATION
  Report Type: 
  Country: None (occurrence: None)
  Receive Date: 20070530
  Receipt Date: 20061116
  Transmission Date: 20071010
  Serious: Yes (Hospitalization)
  Sender: FDA-Public Use
  Company Number: US200603004337

PATIENT
  Age: 41 Year
  Sex: Female
  Weight: 79.4 kg

DRUGS (5)
  1. ZYPREXA [Suspect]
     Indication: DEPRESSION
     Dosage: 5 MG
     Dates: start: 19990601, end: 20051001
  2. CHLORPROMAZINE [Concomitant]
  3. CITALOPRAM HYDROBROMIDE [Concomitant]
  4. FLUOXETINE [Concomitant]
  5. TRIMIPRAMINE MALEATE [Concomitant]

REACTIONS (5)
  - CONVULSION [None]
  - DIABETES MELLITUS NON-INSULIN-DEPENDENT [None]
  - VISION BLURRED [None]
  - WEIGHT DECREASED [None]
  - WEIGHT INCREASED [None]
